FAERS Safety Report 9096967 (Version 2)
Quarter: 2013Q1

REPORT INFORMATION
  Report Type: Spontaneous
  Country: US (occurrence: None)
  Receive Date: 20130124
  Receipt Date: 20130315
  Transmission Date: 20140127
  Serious: Yes (Death)
  Sender: FDA-Public Use
  Company Number: 1301-104

PATIENT
  Sex: Male

DRUGS (1)
  1. EYLEA [Suspect]
     Dates: start: 20120216

REACTIONS (1)
  - Death [None]
